FAERS Safety Report 21633977 (Version 3)
Quarter: 2024Q2

REPORT INFORMATION
  Report Type: Report from Study
  Country: TW (occurrence: TW)
  Receive Date: 20221123
  Receipt Date: 20240501
  Transmission Date: 20240715
  Serious: Yes (Hospitalization, Other)
  Sender: FDA-Public Use
  Company Number: TW-TAKEDA-2022TUS086843

PATIENT
  Age: 45 Year
  Sex: Male

DRUGS (1)
  1. VEDOLIZUMAB [Suspect]
     Active Substance: VEDOLIZUMAB
     Indication: Colitis ulcerative
     Dosage: 300 MILLIGRAM
     Route: 042
     Dates: start: 20220223, end: 20240422

REACTIONS (6)
  - Colitis ulcerative [Recovering/Resolving]
  - Gastrooesophageal reflux disease [Recovered/Resolved]
  - Chronic gastritis [Recovered/Resolved]
  - Duodenal ulcer [Recovered/Resolved]
  - Drug ineffective [Recovering/Resolving]
  - Candida infection [Recovered/Resolved]

NARRATIVE: CASE EVENT DATE: 20221114
